FAERS Safety Report 8209803-9 (Version None)
Quarter: 2012Q1

REPORT INFORMATION
  Report Type: 
  Country: None (occurrence: None)
  Receive Date: 20120314
  Receipt Date: 20120302
  Transmission Date: 20120608
  Serious: Yes (Death, Other)
  Sender: FDA-Public Use
  Company Number: JP-BRISTOL-MYERS SQUIBB COMPANY-16441214

PATIENT
  Age: 25 Year
  Sex: Female

DRUGS (2)
  1. TAXOL [Suspect]
     Indication: OVARIAN CANCER
     Dosage: NO OF COURSES:4
  2. PARAPLATIN AQ [Suspect]
     Indication: OVARIAN CANCER
     Dosage: NO OF COURSES:4

REACTIONS (4)
  - INFECTION [None]
  - ASCITES [None]
  - CANCER PAIN [None]
  - COUGH [None]
